FAERS Safety Report 4516766-6 (Version None)
Quarter: 2004Q4

REPORT INFORMATION
  Report Type: 
  Country: None (occurrence: None)
  Receive Date: 20041029
  Receipt Date: 20040720
  Transmission Date: 20050328
  Serious: No
  Sender: FDA-Public Use
  Company Number: 2004-118829-NL

PATIENT
  Age: 31 Year
  Sex: Female
  Weight: 90.9 kg

DRUGS (6)
  1. NUVARING [Suspect]
     Indication: CONTRACEPTION
     Dosage: DF DAILY VAGINAL
     Route: 067
     Dates: start: 20040201
  2. WELLBUTRIN [Concomitant]
  3. MULTI-VITAMINS [Concomitant]
  4. CALCIUM [Concomitant]
  5. HAIR AND NAIL SUPPLEMENT [Concomitant]
  6. VAGINAL CREAM [Concomitant]

REACTIONS (4)
  - DEVICE FAILURE [None]
  - MEDICAL DEVICE DISCOMFORT [None]
  - VAGINAL CONTRACEPTIVE DEVICE EXPELLED [None]
  - VAGINAL MYCOSIS [None]
